FAERS Safety Report 10654939 (Version 2)
Quarter: 2015Q1

REPORT INFORMATION
  Report Type: Spontaneous
  Country: US (occurrence: US)
  Receive Date: 20141216
  Receipt Date: 20150203
  Transmission Date: 20150720
  Serious: No
  Sender: FDA-Public Use
  Company Number: US-PFIZER INC-2014343613

PATIENT
  Sex: Female

DRUGS (1)
  1. CELEBREX [Suspect]
     Active Substance: CELECOXIB
     Indication: PAIN
     Dosage: 200 MG, DAILY

REACTIONS (5)
  - Decreased appetite [Unknown]
  - Dry mouth [Unknown]
  - Condition aggravated [Unknown]
  - Drug ineffective [Unknown]
  - Depression [Unknown]
